FAERS Safety Report 4577820-6 (Version None)
Quarter: 2005Q1

REPORT INFORMATION
  Report Type: 
  Country: None (occurrence: None)
  Receive Date: 20050209
  Receipt Date: 20050127
  Transmission Date: 20050727
  Serious: Yes (Other)
  Sender: FDA-Public Use
  Company Number: CHNY2005JP00464

PATIENT
  Sex: 0

DRUGS (1)
  1. TAVEGYL (NCH) (CLEMASTINE HYDROVGEN FUMARATE) [Suspect]
     Indication: NASOPHARYNGITIS
     Dosage: ORAL
     Route: 048

REACTIONS (2)
  - HERPES SIMPLEX SEROLOGY POSITIVE [None]
  - STEVENS-JOHNSON SYNDROME [None]
